FAERS Safety Report 9796946 (Version 4)
Quarter: 2014Q4

REPORT INFORMATION
  Report Type: Spontaneous
  Country: US (occurrence: US)
  Receive Date: 20140105
  Receipt Date: 20141212
  Transmission Date: 20150529
  Serious: Yes (Death, Hospitalization, Other)
  Sender: FDA-Public Use
  Company Number: US-MERCK-1401USA000572

PATIENT
  Sex: Male
  Weight: 113.38 kg

DRUGS (1)
  1. JANUVIA [Suspect]
     Active Substance: SITAGLIPTIN PHOSPHATE
     Dosage: 100 MG, QD
     Route: 048
     Dates: start: 20080326, end: 20080802

REACTIONS (23)
  - Hyperlipidaemia [Unknown]
  - Mental status changes [Not Recovered/Not Resolved]
  - Hypotension [Not Recovered/Not Resolved]
  - Rash [Unknown]
  - Pancreatic carcinoma [Fatal]
  - Metastases to liver [Fatal]
  - Hypercholesterolaemia [Unknown]
  - Splenomegaly [Unknown]
  - Hyponatraemia [Not Recovered/Not Resolved]
  - Pleural effusion [Unknown]
  - Aortic arteriosclerosis [Unknown]
  - Pain [Unknown]
  - Hypertension [Not Recovered/Not Resolved]
  - Radiotherapy [Unknown]
  - Ascites [Unknown]
  - Benign neoplasm of adrenal gland [Unknown]
  - Dehydration [Not Recovered/Not Resolved]
  - Nephrolithiasis [Unknown]
  - Hepatic steatosis [Unknown]
  - Diarrhoea [Not Recovered/Not Resolved]
  - Asthenia [Not Recovered/Not Resolved]
  - Liver disorder [Unknown]
  - Gastrooesophageal reflux disease [Unknown]

NARRATIVE: CASE EVENT DATE: 200910
